FAERS Safety Report 5660388-0 (Version None)
Quarter: 2008Q1

REPORT INFORMATION
  Report Type: 
  Country: None (occurrence: None)
  Receive Date: 20080311
  Receipt Date: 20071212
  Transmission Date: 20080703
  Serious: No
  Sender: FDA-Public Use
  Company Number: US-BAYER-200713281BCC

PATIENT
  Sex: Female
  Weight: 73 kg

DRUGS (6)
  1. ALEVE [Suspect]
     Indication: ARTHRITIS
     Dosage: TOTAL DAILY DOSE: 440 MG  UNIT DOSE: 220 MG
     Route: 048
  2. ZOCOR [Concomitant]
  3. FOSAMAX [Concomitant]
  4. MULTIVITAMIN STORE BRAND [Concomitant]
  5. ASPIRIN STORE BRAND [Concomitant]
  6. FISH OIL [Concomitant]

REACTIONS (1)
  - MUSCLE SPASMS [None]
